FAERS Safety Report 8819475 (Version 1)
Quarter: 2012Q4

REPORT INFORMATION
  Report Type: Report from Study
  Country: US (occurrence: US)
  Receive Date: 20120930
  Receipt Date: 20120930
  Transmission Date: 20130627
  Serious: Yes (Death, Hospitalization)
  Sender: FDA-Public Use
  Company Number: US-BRISTOL-MYERS SQUIBB COMPANY-16978488

PATIENT
  Age: 55 Year

DRUGS (3)
  1. CISPLATIN [Suspect]
     Indication: MULTIPLE MYELOMA
  2. ETOPOSIDE [Suspect]
     Indication: MULTIPLE MYELOMA
  3. CYCLOPHOSPHAMIDE [Suspect]
     Indication: MULTIPLE MYELOMA

REACTIONS (5)
  - Malignant neoplasm progression [Fatal]
  - Thrombocytopenia [Unknown]
  - Epistaxis [Unknown]
  - Jaundice [Unknown]
  - Renal failure acute [Unknown]
